FAERS Safety Report 6769472-1 (Version None)
Quarter: 2010Q2

REPORT INFORMATION
  Report Type: 
  Country: None (occurrence: None)
  Receive Date: 20100615
  Receipt Date: 20100602
  Transmission Date: 20101027
  Serious: Yes (Death, Hospitalization)
  Sender: FDA-Public Use
  Company Number: US-BRISTOL-MYERS SQUIBB COMPANY-15134125

PATIENT
  Age: 51 Year
  Sex: Female

DRUGS (7)
  1. CETUXIMAB [Suspect]
     Indication: OROPHARYNGEAL CANCER STAGE UNSPECIFIED
     Dates: end: 20070924
  2. CARBOPLATIN [Suspect]
     Indication: OROPHARYNGEAL CANCER STAGE UNSPECIFIED
     Dosage: 45MG/DAY FOR 5 DAYS EVERY 2 WEEKS.
     Dates: end: 20070924
  3. RITUXIMAB [Suspect]
     Indication: RHEUMATOID ARTHRITIS
     Dosage: 1 DF = TWO 1000MG INFUSION ON DAY 1 AND DAY 15 ALSO IN MAR04,DEC04,NOV06.
     Dates: start: 20030701
  4. RADIATION THERAPY [Suspect]
     Indication: OROPHARYNGEAL CANCER STAGE UNSPECIFIED
     Dosage: 1 DF = 66 GY
     Dates: end: 20070924
  5. METHOTREXATE [Suspect]
     Indication: RHEUMATOID ARTHRITIS
     Dosage: INCREASED TO 20 MG/WEEK IN FEB-2005
  6. PREDNISONE [Suspect]
     Indication: RHEUMATOID ARTHRITIS
     Dosage: 60MG/DAY FOR 6DAYS AND 30MG/D FOR 7 DAYS.
  7. METHYLPREDNISOLONE ACETATE [Concomitant]
     Indication: PREMEDICATION
     Route: 042

REACTIONS (5)
  - MALNUTRITION [None]
  - PNEUMONIA BACTERIAL [None]
  - PROGRESSIVE MULTIFOCAL LEUKOENCEPHALOPATHY [None]
  - RESPIRATORY FAILURE [None]
  - SINUSITIS [None]
